FAERS Safety Report 9376228 (Version 1)
Quarter: 2013Q3

REPORT INFORMATION
  Report Type: Spontaneous
  Country: FR (occurrence: FR)
  Receive Date: 20130701
  Receipt Date: 20130701
  Transmission Date: 20140515
  Serious: Yes (Death)
  Sender: FDA-Public Use
  Company Number: PHHY2013FR066994

PATIENT
  Age: 81 Year
  Sex: Male

DRUGS (15)
  1. VANCOMYCIN SANDOZ [Suspect]
     Indication: ENDOCARDITIS
     Dosage: UNK UKN, UNK
     Route: 042
     Dates: start: 20130530, end: 20130605
  2. GENTAMICINE [Suspect]
     Indication: ENDOCARDITIS
     Dosage: UNK UKN, UNK
     Route: 042
     Dates: start: 20130530, end: 20130605
  3. RIFADINE [Suspect]
     Dosage: UNK UKN, UNK
     Dates: start: 20130531, end: 20130605
  4. EUPANTOL [Suspect]
     Dosage: UNK UKN, UNK
     Route: 048
     Dates: start: 20130525
  5. LOVENOX [Concomitant]
     Dosage: UNK UKN, UNK
     Dates: start: 20130527
  6. ZYLORIC [Concomitant]
     Dosage: UNK UKN, UNK
     Dates: start: 20130528
  7. KARDEGIC [Concomitant]
  8. SPIRIVA [Concomitant]
  9. LASILIX [Concomitant]
  10. KALEORID [Concomitant]
  11. COVERSYL [Concomitant]
  12. NEBILOX [Concomitant]
  13. TOPALGIC [Concomitant]
  14. DAFALGAN [Concomitant]
  15. PARIET [Concomitant]
     Dosage: UNK UKN, UNK
     Dates: end: 201305

REACTIONS (1)
  - Nephropathy toxic [Fatal]
